FAERS Safety Report 5484050-2 (Version None)
Quarter: 2007Q4

REPORT INFORMATION
  Report Type: 
  Country: None (occurrence: None)
  Receive Date: 20071009
  Receipt Date: 20071009
  Transmission Date: 20080405
  Serious: Yes (Life-Threatening)
  Sender: FDA-Public Use
  Company Number: None

PATIENT
  Age: 60 Year
  Sex: Male

DRUGS (2)
  1. GENTAMICIN [Suspect]
     Indication: PROPHYLAXIS
     Dosage: 80MG ONCE IM
     Route: 030
     Dates: start: 20070927, end: 20070927
  2. LIDOCAINE [Suspect]
     Dosage: 10 ONCE OTHER
     Dates: start: 20070927, end: 20070927

REACTIONS (5)
  - ANGIOEDEMA [None]
  - PRURITUS GENERALISED [None]
  - RASH GENERALISED [None]
  - SWOLLEN TONGUE [None]
  - URTICARIA [None]
